FAERS Safety Report 22673729 (Version 3)
Quarter: 2024Q2

REPORT INFORMATION
  Report Type: Spontaneous
  Country: CA (occurrence: CA)
  Receive Date: 20230705
  Receipt Date: 20240429
  Transmission Date: 20240716
  Serious: Yes (Other)
  Sender: FDA-Public Use
  Company Number: CA-PFIZER INC-2020449024

PATIENT
  Age: 68 Year
  Sex: Female

DRUGS (10)
  1. XELJANZ XR [Suspect]
     Active Substance: TOFACITINIB CITRATE
     Indication: Rheumatoid arthritis
     Dosage: 11 MG, 1X/DAY
     Route: 048
     Dates: start: 20201031, end: 20231016
  2. ACETAMINOPHEN [Concomitant]
     Active Substance: ACETAMINOPHEN
     Dosage: UNK
  3. ASPIRIN [Concomitant]
     Active Substance: ASPIRIN
     Dosage: UNK
  4. CELEXA [Concomitant]
     Active Substance: CITALOPRAM HYDROBROMIDE
     Dosage: UNK
  5. HYDROXYCHLOROQUINE [Concomitant]
     Active Substance: HYDROXYCHLOROQUINE
     Dosage: UNK
  6. IMDUR [Concomitant]
     Active Substance: ISOSORBIDE MONONITRATE
     Dosage: UNK
  7. METHOTREXATE [Concomitant]
     Active Substance: METHOTREXATE
     Dosage: UNK
  8. METHOTREXATE [Concomitant]
     Active Substance: METHOTREXATE
     Dosage: 1 DF, DOSAGE UNKNOWN
     Route: 065
  9. PANTOPRAZOLE [Concomitant]
     Active Substance: PANTOPRAZOLE
     Dosage: UNK
  10. SYNTHROID [Concomitant]
     Active Substance: LEVOTHYROXINE SODIUM
     Dosage: UNK

REACTIONS (11)
  - Suicidal ideation [Unknown]
  - Arthropathy [Unknown]
  - Fatigue [Unknown]
  - Sleep disorder [Unknown]
  - Arthralgia [Unknown]
  - Muscle strain [Unknown]
  - Diarrhoea [Recovered/Resolved]
  - Dizziness [Not Recovered/Not Resolved]
  - Burning sensation [Not Recovered/Not Resolved]
  - Intervertebral disc protrusion [Not Recovered/Not Resolved]
  - Gait inability [Unknown]

NARRATIVE: CASE EVENT DATE: 20200101
